FAERS Safety Report 4667403-1 (Version None)
Quarter: 2005Q2

REPORT INFORMATION
  Report Type: 
  Country: None (occurrence: None)
  Receive Date: 20050520
  Receipt Date: 20041027
  Transmission Date: 20051028
  Serious: Yes (Other)
  Sender: FDA-Public Use
  Company Number: PHEH2004US11634

PATIENT
  Age: 57 Year
  Sex: Female

DRUGS (6)
  1. FOSAMAX [Concomitant]
     Indication: OSTEOPENIA
  2. PRAVACHOL [Concomitant]
     Indication: HYPERLIPIDAEMIA
     Dosage: 40 MG, QD
  3. DECADRON                                /CAN/ [Concomitant]
     Indication: NAUSEA
     Dates: start: 20020701
  4. COMPAZINE [Concomitant]
     Indication: NAUSEA
     Dates: start: 20020701
  5. PREVACID [Concomitant]
     Indication: GASTRITIS
     Dates: start: 20020701
  6. ZOMETA [Suspect]
     Indication: BREAST CANCER METASTATIC
     Dosage: 4MG QMO
     Dates: start: 20030304, end: 20040419

REACTIONS (8)
  - ALVEOLOPLASTY [None]
  - BONE DISORDER [None]
  - INFLAMMATION [None]
  - OSTEOMYELITIS [None]
  - PRIMARY SEQUESTRUM [None]
  - SEQUESTRECTOMY [None]
  - TOOTH EXTRACTION [None]
  - TOOTHACHE [None]
